FAERS Safety Report 12646289 (Version 2)
Quarter: 2016Q4

REPORT INFORMATION
  Report Type: Spontaneous
  Country: US (occurrence: US)
  Receive Date: 20160812
  Receipt Date: 20161201
  Transmission Date: 20170207
  Serious: Yes (Hospitalization, Other)
  Sender: FDA-Public Use
  Company Number: US-009507513-1608USA004494

PATIENT
  Sex: Female
  Weight: 79.37 kg

DRUGS (1)
  1. NUVARING [Suspect]
     Active Substance: ETHINYL ESTRADIOL\ETONOGESTREL
     Indication: CONTRACEPTION
     Dosage: RING INSERTED INTO VAGINA FOR 3 WEEKS, THAN REMOVED FOR ONE WEEK
     Route: 067
     Dates: start: 201404, end: 201408

REACTIONS (4)
  - Deep vein thrombosis [Unknown]
  - Muscle spasms [Unknown]
  - Neck pain [Unknown]
  - Infection [Unknown]

NARRATIVE: CASE EVENT DATE: 201407
